FAERS Safety Report 7565617-4 (Version None)
Quarter: 2011Q2

REPORT INFORMATION
  Report Type: 
  Country: None (occurrence: None)
  Receive Date: 20110616
  Receipt Date: 20110610
  Transmission Date: 20111010
  Serious: Yes (Death)
  Sender: FDA-Public Use
  Company Number: ACO_24819_2011

PATIENT
  Age: 23 Year
  Sex: Female

DRUGS (1)
  1. AMPYRA [Suspect]
     Indication: MULTIPLE SCLEROSIS

REACTIONS (2)
  - MARBURG'S VARIANT MULTIPLE SCLEROSIS [None]
  - MULTIPLE SCLEROSIS [None]
